FAERS Safety Report 7049498-3 (Version None)
Quarter: 2010Q4

REPORT INFORMATION
  Report Type: 
  Country: None (occurrence: None)
  Receive Date: 20101018
  Receipt Date: 20101005
  Transmission Date: 20110411
  Serious: Yes (Hospitalization)
  Sender: FDA-Public Use
  Company Number: US-MYLANLABS-2010S1018351

PATIENT
  Age: 67 Year
  Sex: Male
  Weight: 101.7 kg

DRUGS (12)
  1. HYDROCHLOROTHIAZIDE [Suspect]
     Indication: HYPERTENSION
     Route: 048
     Dates: start: 20100120, end: 20100206
  2. HYDROCHLOROTHIAZIDE [Suspect]
     Route: 048
     Dates: start: 20100211, end: 20100220
  3. HYDROCHLOROTHIAZIDE [Suspect]
     Route: 048
     Dates: start: 20100223
  4. LISINOPRIL [Suspect]
     Indication: HYPERTENSION
     Route: 048
     Dates: start: 20091222, end: 20100206
  5. LISINOPRIL [Suspect]
     Route: 048
     Dates: start: 20100211, end: 20100220
  6. LISINOPRIL [Suspect]
     Route: 048
     Dates: start: 20100223
  7. DIAZEPAM [Concomitant]
     Indication: ANXIETY
     Route: 048
     Dates: start: 20020101
  8. SIMVASTATIN [Concomitant]
     Indication: BLOOD TRIGLYCERIDES INCREASED
     Route: 048
     Dates: start: 20060101
  9. AZOR /06230801/ [Concomitant]
     Indication: HYPERTENSION
     Dosage: 5MG/40MG
     Route: 048
     Dates: start: 20081001
  10. TRAMADOL HCL [Concomitant]
     Indication: OSTEOARTHRITIS
     Route: 048
  11. PRILOSEC [Concomitant]
     Indication: GASTRITIS
     Route: 048
     Dates: start: 20050101
  12. MELOXICAM [Concomitant]
     Indication: OSTEOARTHRITIS
     Route: 048
     Dates: start: 20080101

REACTIONS (3)
  - CHEST PAIN [None]
  - OESOPHAGEAL STENOSIS [None]
  - OESOPHAGITIS [None]
